FAERS Safety Report 5053131-X (Version None)
Quarter: 2006Q3

REPORT INFORMATION
  Report Type: 
  Country: None (occurrence: None)
  Receive Date: 20060711
  Receipt Date: 20060628
  Transmission Date: 20061208
  Serious: Yes (Disabling)
  Sender: FDA-Public Use
  Company Number: 111292ISR

PATIENT
  Age: 56 Year
  Sex: Female

DRUGS (3)
  1. CHLOROQUINE PHOSPHATE [Suspect]
     Indication: RHEUMATOID ARTHRITIS
     Dosage: 250 MILLIGRAM ORAL
     Route: 048
     Dates: start: 20030901, end: 20050901
  2. TRAMADOL HCL [Concomitant]
  3. OMEPRAZOLE [Concomitant]

REACTIONS (5)
  - ACQUIRED PIGMENTED RETINOPATHY [None]
  - BLINDNESS [None]
  - HEADACHE [None]
  - RETINAL DEGENERATION [None]
  - VISION BLURRED [None]
